FAERS Safety Report 4382525-0 (Version None)
Quarter: 2004Q2

REPORT INFORMATION
  Report Type: 
  Country: None (occurrence: None)
  Receive Date: 20040609
  Receipt Date: 20040526
  Transmission Date: 20050107
  Serious: Yes (Death, Life-Threatening, Hospitalization)
  Sender: FDA-Public Use
  Company Number: PAGL/04/01/USA

PATIENT
  Age: 86 Year
  Sex: Male
  Weight: 80 kg

DRUGS (1)
  1. PANGLOBULIN [Suspect]
     Indication: THROMBOCYTOPENIA
     Dosage: 84 G, 0.A.D., I.V.
     Route: 042
     Dates: start: 20040511, end: 20040512

REACTIONS (1)
  - RENAL FAILURE ACUTE [None]
